FAERS Safety Report 14267195 (Version 1)
Quarter: 2017Q4

REPORT INFORMATION
  Report Type: Spontaneous
  Country: US (occurrence: None)
  Receive Date: 20171208
  Receipt Date: 20171208
  Transmission Date: 20180321
  Serious: Yes (Life-Threatening, Hospitalization, Other)
  Sender: FDA-Public Use
  Company Number: None

PATIENT
  Age: 29 Year
  Sex: Female
  Weight: 53.07 kg

DRUGS (5)
  1. MIRENA [Suspect]
     Active Substance: LEVONORGESTREL
     Dates: start: 20170707, end: 20171204
  2. STOOL SOFTENER (DOCUSATE) [Concomitant]
     Active Substance: DOCUSATE
  3. MOTRIN [Concomitant]
     Active Substance: IBUPROFEN
  4. MINT TEA [Concomitant]
  5. TYLENOL [Concomitant]
     Active Substance: ACETAMINOPHEN

REACTIONS (3)
  - Internal haemorrhage [None]
  - Ruptured ectopic pregnancy [None]
  - Pregnancy with contraceptive device [None]

NARRATIVE: CASE EVENT DATE: 20171205
